FAERS Safety Report 11376776 (Version 3)
Quarter: 2016Q1

REPORT INFORMATION
  Report Type: Spontaneous
  Country: US (occurrence: US)
  Receive Date: 20150813
  Receipt Date: 20160229
  Transmission Date: 20160525
  Serious: Yes (Death, Hospitalization)
  Sender: FDA-Public Use
  Company Number: US-009507513-1508USA003676

PATIENT
  Age: 60 Year
  Sex: Female

DRUGS (2)
  1. NOXAFIL [Suspect]
     Active Substance: POSACONAZOLE
     Dosage: THREE TABLETS DAILY
     Route: 048
  2. NOXAFIL [Suspect]
     Active Substance: POSACONAZOLE
     Dosage: 100 MG 2 PILLS TWICE DAILY (2 DF, BID)
     Route: 048
     Dates: start: 201501

REACTIONS (3)
  - Adverse event [Unknown]
  - Death [Fatal]
  - Localised infection [Unknown]

NARRATIVE: CASE EVENT DATE: 20150806
